FAERS Safety Report 7962464-6 (Version None)
Quarter: 2011Q4

REPORT INFORMATION
  Report Type: 
  Country: None (occurrence: None)
  Receive Date: 20111207
  Receipt Date: 20111129
  Transmission Date: 20120403
  Serious: Yes (Death)
  Sender: FDA-Public Use
  Company Number: US-GLAXOSMITHKLINE-A0373834A

PATIENT
  Age: 37 Year
  Sex: Male
  Weight: 81.8 kg

DRUGS (1)
  1. PAXIL [Suspect]
     Indication: PRODUCT USED FOR UNKNOWN INDICATION

REACTIONS (6)
  - CARDIO-RESPIRATORY ARREST [None]
  - GUN SHOT WOUND [None]
  - INTRAVENTRICULAR HAEMORRHAGE [None]
  - SUBDURAL HAEMORRHAGE [None]
  - COMPLETED SUICIDE [None]
  - SKULL FRACTURED BASE [None]
